FAERS Safety Report 9870551 (Version 4)
Quarter: 2014Q2

REPORT INFORMATION
  Report Type: Spontaneous
  Country: US (occurrence: US)
  Receive Date: 20140205
  Receipt Date: 20140512
  Transmission Date: 20141212
  Serious: Yes (Death, Other)
  Sender: FDA-Public Use
  Company Number: US-JNJFOC-20140118956

PATIENT
  Age: 80 Year
  Sex: Male
  Weight: 73.94 kg

DRUGS (12)
  1. ZYTIGA [Suspect]
     Indication: PROSTATE CANCER METASTATIC
     Route: 048
  2. PROVENGE VACCINE [Suspect]
     Indication: PROSTATE CANCER
     Route: 065
  3. PREDNISONE [Concomitant]
     Indication: ADRENAL DISORDER
     Route: 065
     Dates: start: 20140319, end: 20140324
  4. ASA [Concomitant]
     Indication: PROPHYLAXIS
     Route: 065
     Dates: start: 20140319, end: 20140324
  5. DIGOXIN [Concomitant]
     Indication: CARDIAC DISORDER
     Route: 065
     Dates: start: 20140319, end: 20140324
  6. OXYCODONE [Concomitant]
     Indication: PAIN
     Route: 065
     Dates: start: 20140319, end: 20140324
  7. HYDROMORPHONE [Concomitant]
     Indication: PAIN
     Route: 065
     Dates: start: 20140319, end: 20140324
  8. DOXYCYCLINE [Concomitant]
     Indication: INFECTION
     Route: 042
     Dates: start: 20140319, end: 20140324
  9. VANCOMYCIN [Concomitant]
     Indication: INFECTION
     Route: 042
     Dates: start: 20140319, end: 20140324
  10. OMEPRAZOLE [Concomitant]
     Indication: GASTROINTESTINAL DISORDER
     Route: 065
     Dates: start: 20140319, end: 20140324
  11. CEFEPIME [Concomitant]
     Indication: INFECTION
     Dosage: ^28 DEGREE^
     Route: 065
     Dates: start: 20140319, end: 20140324
  12. SIMVASTATIN [Concomitant]
     Indication: LIPIDS ABNORMAL
     Route: 065
     Dates: start: 20140319, end: 20140324

REACTIONS (2)
  - Embolic stroke [Fatal]
  - Surgery [Unknown]
